FAERS Safety Report 4302861-3 (Version None)
Quarter: 2004Q1

REPORT INFORMATION
  Report Type: 
  Country: None (occurrence: None)
  Receive Date: 20040223
  Receipt Date: 20040223
  Transmission Date: 20041129
  Serious: Yes (Life-Threatening, Hospitalization)
  Sender: FDA-Public Use
  Company Number: None

PATIENT
  Age: 84 Year
  Sex: Male
  Weight: 55.15 kg

DRUGS (2)
  1. WARFARIN 4 MG AND 5 MG BMS [Suspect]
     Indication: ATRIAL FIBRILLATION
     Dosage: 4 MG ALT DAILY ORAL
     Route: 048
  2. INDOCIN SR [Suspect]
     Indication: ARTHRALGIA
     Dosage: 75 MG BID ORAL
     Route: 048

REACTIONS (7)
  - BLOOD PRESSURE DECREASED [None]
  - GASTRIC HAEMORRHAGE [None]
  - GASTROINTESTINAL HAEMORRHAGE [None]
  - HEART RATE INCREASED [None]
  - INTERNATIONAL NORMALISED RATIO INCREASED [None]
  - RENAL FAILURE [None]
  - RESPIRATORY RATE INCREASED [None]
